FAERS Safety Report 24867186 (Version 1)
Quarter: 2025Q1

REPORT INFORMATION
  Report Type: Spontaneous
  Country: US (occurrence: None)
  Receive Date: 20250117
  Receipt Date: 20250117
  Transmission Date: 20250409
  Serious: Yes (Hospitalization)
  Sender: FDA-CTU
  Company Number: None

PATIENT
  Age: 68 Year
  Sex: Female

DRUGS (1)
  1. TERIFLUNOMIDE [Suspect]
     Active Substance: TERIFLUNOMIDE
     Indication: Multiple sclerosis
     Dosage: 14MG ONCE DAILY
     Route: 048

REACTIONS (8)
  - Blood sodium decreased [None]
  - Vertigo [None]
  - Dizziness [None]
  - Meniere^s disease [None]
  - Memory impairment [None]
  - Cerebral atrophy [None]
  - Headache [None]
  - Sinus disorder [None]
